FAERS Safety Report 7386829-9 (Version None)
Quarter: 2011Q1

REPORT INFORMATION
  Report Type: 
  Country: None (occurrence: None)
  Receive Date: 20110331
  Receipt Date: 20110325
  Transmission Date: 20110831
  Serious: Yes (Hospitalization)
  Sender: FDA-Public Use
  Company Number: FR-PFIZER INC-2011066568

PATIENT
  Age: 27 Year
  Sex: Female

DRUGS (6)
  1. REBIF [Suspect]
     Dosage: 22 UG X 3/WEEK
     Route: 058
     Dates: start: 20101020, end: 20101022
  2. SOLU-MEDROL [Suspect]
     Indication: MULTIPLE SCLEROSIS
     Dosage: 1 G X 3 DAYS
     Route: 042
     Dates: start: 20100818, end: 20100820
  3. SOLU-MEDROL [Suspect]
     Dosage: 1 G X 3 DAYS
     Route: 042
     Dates: start: 20100916, end: 20100918
  4. REBIF [Suspect]
     Dosage: 11 UG X 3/WEEK
     Route: 058
     Dates: start: 20101006
  5. SOLU-MEDROL [Suspect]
     Dosage: 500 MG, SINGLE
     Dates: start: 20101220, end: 20101220
  6. REBIF [Suspect]
     Indication: MULTIPLE SCLEROSIS
     Dosage: 4.4 UG X 3/WEEK
     Route: 058
     Dates: start: 20100920

REACTIONS (1)
  - CYTOLYTIC HEPATITIS [None]
